FAERS Safety Report 8068353-3 (Version None)
Quarter: 2012Q1

REPORT INFORMATION
  Report Type: 
  Country: None (occurrence: None)
  Receive Date: 20120124
  Receipt Date: 20111017
  Transmission Date: 20120608
  Serious: No
  Sender: FDA-Public Use
  Company Number: US-AMGEN-USASP2011053473

PATIENT
  Sex: Female

DRUGS (8)
  1. WOMEN'S ONE-A-DAY [Concomitant]
  2. LISINOPRIL [Concomitant]
  3. PREVACID [Concomitant]
  4. PROLIA [Suspect]
     Indication: OSTEOPOROSIS POSTMENOPAUSAL
     Dosage: 60 MG, Q6MO
     Dates: start: 20110816
  5. NORVASC [Concomitant]
  6. AMLODIPINE [Concomitant]
  7. ALLEGRA [Concomitant]
  8. OSCAL D                            /00944201/ [Concomitant]

REACTIONS (4)
  - IMPAIRED HEALING [None]
  - ERYTHEMA [None]
  - ULCER [None]
  - INDURATION [None]
